FAERS Safety Report 4373110-5 (Version None)
Quarter: 2004Q2

REPORT INFORMATION
  Report Type: 
  Country: None (occurrence: None)
  Receive Date: 20040608
  Receipt Date: 20040524
  Transmission Date: 20050107
  Serious: Yes (Life-Threatening, Hospitalization, Disabling)
  Sender: FDA-Public Use
  Company Number: PHBS2004JP06912

PATIENT
  Age: 31 Year
  Sex: Male
  Weight: 49 kg

DRUGS (6)
  1. NEORAL [Suspect]
     Indication: RENAL TRANSPLANT
     Dosage: 75 MG/DAY
     Route: 048
     Dates: start: 19970301
  2. MEDROL [Suspect]
     Indication: RENAL TRANSPLANT
     Dosage: 4 MG/DAY
     Route: 048
  3. CELLCEPT [Concomitant]
     Indication: RENAL TRANSPLANT
     Dosage: 1 G/DAY
     Route: 048
     Dates: start: 19970301
  4. AMLODIPINE [Concomitant]
     Dosage: 5 MG/DAY
     Route: 048
     Dates: start: 20040401
  5. ARTIST [Concomitant]
     Dosage: 20 MG/DAY
     Route: 048
     Dates: start: 20040401
  6. SELBEX [Concomitant]
     Dosage: 150 MG/DAY
     Route: 048
     Dates: start: 19970301

REACTIONS (6)
  - ARRHYTHMIA [None]
  - CONVULSION [None]
  - HYPOTHERMIA [None]
  - LOSS OF CONSCIOUSNESS [None]
  - RESUSCITATION [None]
  - VENTRICULAR FIBRILLATION [None]
